FAERS Safety Report 13064853 (Version 1)
Quarter: 2016Q4

REPORT INFORMATION
  Report Type: Report from Study
  Country: AU (occurrence: AU)
  Receive Date: 20161227
  Receipt Date: 20161227
  Transmission Date: 20170207
  Serious: Yes (Hospitalization, Other)
  Sender: FDA-Public Use
  Company Number: AU-REGENERON PHARMACEUTICALS, INC.-2016-25303

PATIENT

DRUGS (1)
  1. EYLEA [Suspect]
     Active Substance: AFLIBERCEPT
     Indication: DIABETIC RETINAL OEDEMA
     Dosage: 2 MG, Q1MON
     Route: 031
     Dates: start: 201506

REACTIONS (6)
  - Complications of transplanted kidney [Recovering/Resolving]
  - Renal transplant [Recovering/Resolving]
  - Product use issue [Unknown]
  - Vision blurred [Unknown]
  - Dialysis [Recovering/Resolving]
  - Procedural anxiety [Recovered/Resolved]

NARRATIVE: CASE EVENT DATE: 201506
